FAERS Safety Report 8643856 (Version 10)
Quarter: 2013Q3

REPORT INFORMATION
  Report Type: Spontaneous
  Country: US (occurrence: US)
  Receive Date: 20120629
  Receipt Date: 20130722
  Transmission Date: 20140515
  Serious: Yes (Hospitalization, Disabling, Other)
  Sender: FDA-Public Use
  Company Number: US-009507513-1206USA04638

PATIENT
  Sex: Female
  Weight: 59.41 kg

DRUGS (3)
  1. FOSAMAX [Suspect]
     Indication: OSTEOPOROSIS
     Dosage: 10 MG, QD
     Route: 048
     Dates: start: 19981101, end: 20061231
  2. FOSAMAX [Suspect]
     Dosage: 70 MG, QW
     Route: 048
     Dates: start: 20010208
  3. FOSAMAX PLUS D [Suspect]
     Indication: OSTEOPOROSIS
     Dosage: 70/2800 MG, QW
     Route: 048
     Dates: start: 20060616

REACTIONS (46)
  - Femur fracture [Not Recovered/Not Resolved]
  - Open reduction of fracture [Unknown]
  - Bone graft [Unknown]
  - Device failure [Unknown]
  - Femur fracture [Unknown]
  - Hip fracture [Unknown]
  - Femoral neck fracture [Recovered/Resolved]
  - External fixation of fracture [Recovered/Resolved]
  - Femur fracture [Unknown]
  - Open reduction of fracture [Unknown]
  - Bone graft [Unknown]
  - Medical device removal [Recovered/Resolved]
  - Limb operation [Unknown]
  - Osteoporosis [Not Recovered/Not Resolved]
  - Tibia fracture [Unknown]
  - Femur fracture [Not Recovered/Not Resolved]
  - Multiple fractures [Not Recovered/Not Resolved]
  - Low turnover osteopathy [Not Recovered/Not Resolved]
  - Tibia fracture [Unknown]
  - Fracture nonunion [Unknown]
  - Impaired healing [Unknown]
  - Hand fracture [Unknown]
  - Essential hypertension [Unknown]
  - Rheumatoid arthritis [Unknown]
  - Contusion [Unknown]
  - Osteopenia [Unknown]
  - Joint injury [Unknown]
  - Treatment noncompliance [Unknown]
  - Amenorrhoea [Unknown]
  - Sciatica [Unknown]
  - Fracture [Unknown]
  - Impaired healing [Unknown]
  - Hypoaesthesia [Unknown]
  - Vitamin D deficiency [Unknown]
  - Bone lesion [Unknown]
  - Hand fracture [Unknown]
  - Urine calcium increased [Unknown]
  - Vitamin D decreased [Unknown]
  - Fall [Unknown]
  - Stress fracture [Unknown]
  - Stress fracture [Unknown]
  - Arthralgia [Recovering/Resolving]
  - Myalgia [Recovering/Resolving]
  - Arthralgia [Recovering/Resolving]
  - Hypersensitivity [Unknown]
  - Diarrhoea [Unknown]
